FAERS Safety Report 6779940-4 (Version None)
Quarter: 2010Q2

REPORT INFORMATION
  Report Type: 
  Country: None (occurrence: None)
  Receive Date: 20100618
  Receipt Date: 20100607
  Transmission Date: 20101027
  Serious: Yes (Other)
  Sender: FDA-Public Use
  Company Number: US-PFIZER INC-2010071355

PATIENT
  Sex: Female

DRUGS (4)
  1. DILANTIN [Suspect]
     Indication: EPILEPSY
     Dosage: 200MG IN MORNING, 100MG AT NIGHT
     Route: 048
  2. DETROL LA [Suspect]
     Indication: BLADDER DISORDER
     Dosage: UNK
     Route: 048
  3. LAMICTAL [Concomitant]
     Indication: EPILEPSY
     Dosage: 250 MG, 1X/DAY
     Route: 048
  4. ACETYLSALICYLIC ACID [Concomitant]
     Indication: CARDIAC DISORDER
     Dosage: 81 MG, 1X/DAY
     Route: 048

REACTIONS (2)
  - CONVULSION [None]
  - INSOMNIA [None]
